FAERS Safety Report 11388216 (Version 3)
Quarter: 2015Q3

REPORT INFORMATION
  Report Type: Spontaneous
  Country: None (occurrence: FR)
  Receive Date: 20150817
  Receipt Date: 20150916
  Transmission Date: 20151125
  Serious: Yes (Other)
  Sender: FDA-Public Use
  Company Number: FR-MEDAC PHARMA, INC.-1041139

PATIENT
  Age: 83 Year
  Sex: Female

DRUGS (6)
  1. METOJECT [Suspect]
     Active Substance: METHOTREXATE SODIUM
     Indication: TEMPORAL ARTERITIS
     Route: 051
     Dates: start: 2015
  2. CORTANCYL [Concomitant]
     Active Substance: PREDNISONE
  3. COUMADIN [Concomitant]
     Active Substance: WARFARIN SODIUM
  4. FOLIC ACID. [Concomitant]
     Active Substance: FOLIC ACID
  5. LASILIX [Concomitant]
     Active Substance: FUROSEMIDE
  6. MODAMIDE [Concomitant]
     Active Substance: AMILORIDE HYDROCHLORIDE

REACTIONS (2)
  - Deafness bilateral [Not Recovered/Not Resolved]
  - Product use issue [Unknown]

NARRATIVE: CASE EVENT DATE: 2015
